FAERS Safety Report 6969654-X (Version None)
Quarter: 2010Q3

REPORT INFORMATION
  Report Type: 
  Country: None (occurrence: None)
  Receive Date: 20100908
  Receipt Date: 20100901
  Transmission Date: 20110219
  Serious: Yes (Other)
  Sender: FDA-Public Use
  Company Number: US-ASTRAZENECA-2008UW22835

PATIENT
  Age: 546 Month
  Sex: Female
  Weight: 81.6 kg

DRUGS (15)
  1. SEROQUEL [Suspect]
     Indication: SCHIZOPHRENIA
     Dosage: 600-900 MG
     Route: 048
     Dates: start: 20021211
  2. SEROQUEL [Suspect]
     Indication: DEPRESSION
     Dosage: 600-900 MG
     Route: 048
     Dates: start: 20021211
  3. SEROQUEL [Suspect]
     Indication: BIPOLAR DISORDER
     Dosage: 600-900 MG
     Route: 048
     Dates: start: 20021211
  4. SEROQUEL [Suspect]
     Route: 048
     Dates: start: 20050101
  5. SEROQUEL [Suspect]
     Route: 048
     Dates: start: 20050101
  6. SEROQUEL [Suspect]
     Route: 048
     Dates: start: 20050101
  7. ABILIFY [Concomitant]
     Dates: start: 20000101, end: 20090101
  8. GEODON [Concomitant]
  9. RISPERDAL [Concomitant]
  10. ZYPREXA [Concomitant]
  11. ESKALITH [Concomitant]
     Dates: start: 20021211
  12. WELLBUTRIN SR [Concomitant]
     Dates: start: 20021211
  13. HYDROXYZINE [Concomitant]
     Dates: start: 20021211
  14. ATIVAN [Concomitant]
     Indication: ANXIETY
     Route: 048
     Dates: start: 20080903
  15. ASPIRIN [Concomitant]
     Route: 048
     Dates: start: 20080903

REACTIONS (2)
  - DIABETES MELLITUS [None]
  - NEUROPATHY PERIPHERAL [None]
